FAERS Safety Report 6122666-0 (Version None)
Quarter: 2009Q1

REPORT INFORMATION
  Report Type: 
  Country: None (occurrence: None)
  Receive Date: 20090318
  Receipt Date: 20090305
  Transmission Date: 20090719
  Serious: Yes (Other)
  Sender: FDA-Public Use
  Company Number: US-WATSON-2009-01539

PATIENT
  Sex: Male
  Weight: 66.213 kg

DRUGS (1)
  1. MINOCYCLINE HYDROCHLORIDE (WATSON LABORATORIES) [Suspect]
     Indication: ACNE
     Dosage: 1 CAPSULE, BID
     Route: 048
     Dates: start: 20081120, end: 20081219

REACTIONS (10)
  - BACK PAIN [None]
  - CONVULSION [None]
  - EPILEPSY [None]
  - FALL [None]
  - FLUSHING [None]
  - HYPERHIDROSIS [None]
  - LOSS OF CONSCIOUSNESS [None]
  - MUSCLE SPASMS [None]
  - MYDRIASIS [None]
  - TREMOR [None]
